FAERS Safety Report 5060474-2 (Version None)
Quarter: 2006Q3

REPORT INFORMATION
  Report Type: 
  Country: None (occurrence: None)
  Receive Date: 20060720
  Receipt Date: 20060720
  Transmission Date: 20061208
  Serious: No
  Sender: FDA-Public Use
  Company Number: None

PATIENT

DRUGS (8)
  1. MELLARIL [Suspect]
  2. STELAZINE [Concomitant]
  3. HALDOL [Concomitant]
  4. PROLIXIN [Concomitant]
  5. CLONAZEPAM [Concomitant]
  6. AMITRIPTYLENE [Concomitant]
  7. RISPERDYL [Concomitant]
  8. LITHIUM CARBONATE [Concomitant]

REACTIONS (16)
  - AMNESIA [None]
  - CHILLS [None]
  - CHROMATURIA [None]
  - DISCOMFORT [None]
  - DRUG EFFECT DECREASED [None]
  - DYSPHORIA [None]
  - ERECTILE DYSFUNCTION [None]
  - GAIT DISTURBANCE [None]
  - NERVOUSNESS [None]
  - PAIN [None]
  - SHOCK [None]
  - SUICIDAL IDEATION [None]
  - SWOLLEN TONGUE [None]
  - TARDIVE DYSKINESIA [None]
  - URINE FLOW DECREASED [None]
  - VISUAL DISTURBANCE [None]
